FAERS Safety Report 21155648 (Version 1)
Quarter: 2022Q3

REPORT INFORMATION
  Report Type: Spontaneous
  Country: CA (occurrence: CA)
  Receive Date: 20220801
  Receipt Date: 20220801
  Transmission Date: 20221027
  Serious: Yes (Other)
  Sender: FDA-Public Use
  Company Number: CA-BRISTOL-MYERS SQUIBB COMPANY-2022-080194

PATIENT
  Age: 50 Year
  Sex: Male

DRUGS (3)
  1. NIVOLUMAB [Suspect]
     Active Substance: NIVOLUMAB
     Indication: Metastatic renal cell carcinoma
     Dosage: EVERY 3  WEEKS FOR 4 CYCLE
     Route: 065
  2. NIVOLUMAB [Suspect]
     Active Substance: NIVOLUMAB
     Dosage: EVERY 3 MG/KG EVERY 2 WEEKS
     Route: 065
  3. IPILIMUMAB [Suspect]
     Active Substance: IPILIMUMAB
     Indication: Metastatic renal cell carcinoma
     Dosage: EVERY 3  WEEKS FOR 4 CYCLE
     Route: 065

REACTIONS (5)
  - Immune-mediated hypothyroidism [Unknown]
  - Myositis [Unknown]
  - Immune-mediated uveitis [Recovering/Resolving]
  - Immune-mediated enterocolitis [Unknown]
  - Pulmonary sarcoidosis [Unknown]
